FAERS Safety Report 8422512-6 (Version None)
Quarter: 2012Q2

REPORT INFORMATION
  Report Type: 
  Country: None (occurrence: None)
  Receive Date: 20120608
  Receipt Date: 20120530
  Transmission Date: 20120825
  Serious: Yes (Hospitalization, Congenital Anomaly, Other)
  Sender: FDA-Public Use
  Company Number: US-ASTRAZENECA-2012SE30510

PATIENT
  Age: 50 Year
  Sex: Female

DRUGS (2)
  1. NEXIUM [Suspect]
     Route: 048
  2. SYMBICORT [Suspect]
     Route: 055

REACTIONS (7)
  - ULCER HAEMORRHAGE [None]
  - ULCER [None]
  - INTENTIONAL DRUG MISUSE [None]
  - DRUG DOSE OMISSION [None]
  - PAIN [None]
  - HERNIA [None]
  - PNEUMONIA [None]
